FAERS Safety Report 11132353 (Version 1)
Quarter: 2015Q2

REPORT INFORMATION
  Report Type: Spontaneous
  Country: US (occurrence: None)
  Receive Date: 20150515
  Receipt Date: 20150515
  Transmission Date: 20150821
  Serious: Yes (Other)
  Sender: FDA-Public Use
  Company Number: 2014-14761

PATIENT
  Age: 51 Year
  Sex: Female

DRUGS (1)
  1. BUPROPION HYDROCHLORIDE EXTENDED RELEASE (SR) (WATSON LABORATORIES) (BUPROPION HYDROCHLORIDE) TABLET (EXTENDED RELEASE) . 150MG [Suspect]
     Active Substance: BUPROPION HYDROCHLORIDE
     Indication: MAJOR DEPRESSION
     Route: 048
     Dates: start: 20140516

REACTIONS (7)
  - Decreased interest [None]
  - Irritability [None]
  - Drug ineffective [None]
  - Suicidal ideation [None]
  - Depression [None]
  - Catatonia [None]
  - Asthenia [None]

NARRATIVE: CASE EVENT DATE: 20140516
